FAERS Safety Report 5389876-1 (Version None)
Quarter: 2007Q3

REPORT INFORMATION
  Report Type: 
  Country: None (occurrence: None)
  Receive Date: 20070713
  Receipt Date: 20070702
  Transmission Date: 20080115
  Serious: Yes (Other)
  Sender: FDA-Public Use
  Company Number: GXKR2007NZ05671

PATIENT
  Age: 66 Year
  Sex: Male

DRUGS (2)
  1. 5-FLUOROURACIL (NGX)(5-FLUOROURACIL) [Suspect]
     Indication: COLON CANCER STAGE III
     Dosage: 750 MG, QW, INTRAVENOUS
     Route: 042
  2. FOLINIC ACID (NGX(FOLINIC ACID) UNKNOWN [Suspect]
     Indication: COLON CANCER STAGE III
     Dosage: 35 MG, QW, INTRAVENOUS
     Route: 042

REACTIONS (2)
  - CHOLESTASIS [None]
  - LIVER INJURY [None]
